FAERS Safety Report 14022700 (Version 2)
Quarter: 2017Q4

REPORT INFORMATION
  Report Type: Report from Study
  Country: PA (occurrence: PA)
  Receive Date: 20170929
  Receipt Date: 20171003
  Transmission Date: 20180321
  Serious: Yes (Life-Threatening, Hospitalization, Other)
  Sender: FDA-Public Use
  Company Number: PHHY2017PA143122

PATIENT
  Sex: Female
  Weight: 80 kg

DRUGS (5)
  1. METFORMIN [Suspect]
     Active Substance: METFORMIN HYDROCHLORIDE
     Indication: PRODUCT USED FOR UNKNOWN INDICATION
     Dosage: 0.5 DF, BID
     Route: 048
  2. INDAPAMIDE. [Concomitant]
     Active Substance: INDAPAMIDE
     Indication: PRODUCT USED FOR UNKNOWN INDICATION
     Dosage: 1.5 MG, QD
     Route: 048
  3. ASPIRIN. [Concomitant]
     Active Substance: ASPIRIN
     Indication: PRODUCT USED FOR UNKNOWN INDICATION
     Dosage: 1 DF, QD
     Route: 048
  4. SANDOSTATIN LAR DEPOT [Suspect]
     Active Substance: OCTREOTIDE ACETATE
     Indication: ACROMEGALY
     Dosage: 20 MG, QMO
     Route: 030
     Dates: start: 201507, end: 20170630
  5. SANDOSTATIN LAR DEPOT [Suspect]
     Active Substance: OCTREOTIDE ACETATE
     Dosage: 20 MG, EVERY 15DAYS
     Route: 030
     Dates: start: 20170927

REACTIONS (18)
  - Blood growth hormone increased [Unknown]
  - Incorrect drug administration duration [Unknown]
  - Head discomfort [Unknown]
  - Hypothalamo-pituitary disorder [Recovered/Resolved]
  - Diarrhoea [Unknown]
  - Skin disorder [Unknown]
  - General physical health deterioration [Recovered/Resolved]
  - Hypophysitis [Unknown]
  - Memory impairment [Unknown]
  - Haematochezia [Unknown]
  - Burning sensation [Unknown]
  - Asthenia [Unknown]
  - Apparent death [Recovered/Resolved]
  - Hormone level abnormal [Recovered/Resolved]
  - Exophthalmos [Unknown]
  - Wound [Unknown]
  - Feeling abnormal [Unknown]
  - Incorrect dose administered [Unknown]
